FAERS Safety Report 13509212 (Version 1)
Quarter: 2017Q2

REPORT INFORMATION
  Report Type: Other
  Country: FR (occurrence: FR)
  Receive Date: 20170503
  Receipt Date: 20170503
  Transmission Date: 20170830
  Serious: Yes (Hospitalization)
  Sender: FDA-Public Use
  Company Number: FR-EMCURE PHARMS-2017HTG00099

PATIENT
  Age: 64 Year
  Sex: Female

DRUGS (10)
  1. BICNU [Suspect]
     Active Substance: CARMUSTINE
     Indication: B-CELL LYMPHOMA STAGE III
     Dosage: 595 MG, UNK
     Route: 042
     Dates: start: 20160519
  2. CYTARABINE KABI [Suspect]
     Active Substance: CYTARABINE
     Indication: B-CELL LYMPHOMA STAGE III
     Dosage: 400 MG, AS DIRECTED EVERY 12 HOURS
     Route: 042
     Dates: start: 20160520, end: 20160523
  3. VIREAD [Concomitant]
     Active Substance: TENOFOVIR DISOPROXIL FUMARATE
  4. INEXIUM [Concomitant]
     Active Substance: ESOMEPRAZOLE
  5. BISOPROLOL FUMARATE. [Concomitant]
     Active Substance: BISOPROLOL FUMARATE
  6. ALKERAN [Suspect]
     Active Substance: MELPHALAN
     Indication: B-CELL LYMPHOMA STAGE III
     Dosage: 279 MG, UNK
     Route: 042
     Dates: start: 20160524
  7. ETOPOPHOS [Suspect]
     Active Substance: ETOPOSIDE PHOSPHATE
     Indication: B-CELL LYMPHOMA STAGE III
     Dosage: 199 MG, AS DIRECTED EVERY 12 HOURS
     Route: 042
     Dates: start: 20160520, end: 20160523
  8. RAMIPRIL. [Concomitant]
     Active Substance: RAMIPRIL
  9. TAHOR [Concomitant]
     Active Substance: ATORVASTATIN CALCIUM
  10. ESIDREX [Concomitant]
     Active Substance: HYDROCHLOROTHIAZIDE

REACTIONS (3)
  - Pyrexia [Unknown]
  - Palpitations [Unknown]
  - Atrial fibrillation [Recovered/Resolved]

NARRATIVE: CASE EVENT DATE: 20160607
